FAERS Safety Report 26111107 (Version 1)
Quarter: 2025Q4

REPORT INFORMATION
  Report Type: Report from Study
  Country: CN (occurrence: CN)
  Receive Date: 20251202
  Receipt Date: 20251202
  Transmission Date: 20260118
  Serious: Yes (Other)
  Sender: ROCHE
  Company Number: CN-ROCHE-10000444489

PATIENT

DRUGS (12)
  1. BEVACIZUMAB [Suspect]
     Active Substance: BEVACIZUMAB
     Indication: Ovarian cancer
     Route: 042
  2. BEVACIZUMAB [Suspect]
     Active Substance: BEVACIZUMAB
     Route: 042
  3. BEVACIZUMAB [Suspect]
     Active Substance: BEVACIZUMAB
     Route: 042
  4. PACLITAXEL [Suspect]
     Active Substance: PACLITAXEL
     Indication: Ovarian cancer
     Dosage: ON DAY 2, THE PATIENT WAS INTRAVENOUSLY INFUSED WITH 135 TO 175 MG/M2 FOR MORE THAN 3 HOURS
     Route: 042
  5. PACLITAXEL [Suspect]
     Active Substance: PACLITAXEL
     Dosage: ON DAY 2, THE PATIENT WAS INTRAVENOUSLY INFUSED WITH 135 TO 175 MG/M2 FOR MORE THAN 3 HOURS
     Route: 042
  6. PACLITAXEL [Suspect]
     Active Substance: PACLITAXEL
     Dosage: ON DAY 2, THE PATIENT WAS INTRAVENOUSLY INFUSED WITH 135 TO 175 MG/M2 FOR MORE THAN 3 HOURS
     Route: 042
  7. CISPLATIN [Suspect]
     Active Substance: CISPLATIN
     Indication: Ovarian cancer
     Dosage: FOR MORE THAN 1 HOUR
     Route: 042
  8. CISPLATIN [Suspect]
     Active Substance: CISPLATIN
     Dosage: FOR MORE THAN 1 HOUR
     Route: 042
  9. CISPLATIN [Suspect]
     Active Substance: CISPLATIN
     Dosage: FOR MORE THAN 1 HOUR
     Route: 042
  10. SOPHORA FLAVESCENS ROOT [Suspect]
     Active Substance: SOPHORA FLAVESCENS ROOT
     Indication: Ovarian cancer
     Route: 065
  11. SOPHORA FLAVESCENS ROOT [Suspect]
     Active Substance: SOPHORA FLAVESCENS ROOT
     Route: 065
  12. SOPHORA FLAVESCENS ROOT [Suspect]
     Active Substance: SOPHORA FLAVESCENS ROOT
     Route: 065

REACTIONS (4)
  - Hepatic function abnormal [Unknown]
  - Renal impairment [Unknown]
  - Gastrointestinal disorder [Unknown]
  - Myelosuppression [Unknown]
